FAERS Safety Report 10038369 (Version 1)
Quarter: 2014Q1

REPORT INFORMATION
  Report Type: Spontaneous
  Country: US (occurrence: US)
  Receive Date: 20140326
  Receipt Date: 20140326
  Transmission Date: 20141002
  Serious: Yes (Other)
  Sender: FDA-Public Use
  Company Number: US-MYLANLABS-2014S1005946

PATIENT
  Age: 58 Year
  Sex: Female

DRUGS (1)
  1. EPIPEN 2-PAK [Suspect]
     Indication: ALLERGY TO ARTHROPOD STING
     Route: 030

REACTIONS (2)
  - Device failure [Recovered/Resolved]
  - Loss of consciousness [Recovered/Resolved]
